FAERS Safety Report 9148863 (Version 2)
Quarter: 2013Q1

REPORT INFORMATION
  Report Type: Report from Study
  Country: DE (occurrence: DE)
  Receive Date: 20130308
  Receipt Date: 20130329
  Transmission Date: 20140127
  Serious: Yes (Other)
  Sender: FDA-Public Use
  Company Number: DE-B.I. PHARMACEUTICALS,INC./RIDGEFIELD-2013-DE-00604DE

PATIENT
  Age: 85 Year
  Sex: Male

DRUGS (7)
  1. SIFROL [Suspect]
     Dosage: 1 ANZ
     Route: 048
     Dates: start: 20130301, end: 20130301
  2. CLOZAPINE [Suspect]
     Dosage: 1 ANZ
     Route: 048
     Dates: start: 20130301, end: 20130301
  3. PROTHYRID [Suspect]
     Dosage: 1 ANZ
     Route: 048
     Dates: start: 20130301, end: 20130301
  4. MOTILIUM [Suspect]
  5. MADOPAR [Suspect]
  6. BACLOFEN [Suspect]
  7. KEPPRA [Suspect]

REACTIONS (4)
  - Medication error [Recovered/Resolved]
  - Sopor [Recovered/Resolved]
  - Dehydration [Recovered/Resolved]
  - Hypotension [Recovered/Resolved]
